FAERS Safety Report 6857473-4 (Version None)
Quarter: 2010Q3

REPORT INFORMATION
  Report Type: 
  Country: None (occurrence: None)
  Receive Date: 20100719
  Receipt Date: 20080122
  Transmission Date: 20110219
  Serious: No
  Sender: FDA-Public Use
  Company Number: US-PFIZER INC-2008008346

PATIENT
  Sex: Female
  Weight: 94.5 kg

DRUGS (6)
  1. CHANTIX [Suspect]
     Indication: SMOKING CESSATION THERAPY
     Dates: start: 20080101
  2. ATENOLOL [Concomitant]
  3. NABUMETONE [Concomitant]
  4. PREMARIN [Concomitant]
  5. MONTELUKAST SODIUM [Concomitant]
  6. ACYCLOVIR [Concomitant]

REACTIONS (2)
  - HEADACHE [None]
  - NAUSEA [None]
